FAERS Safety Report 4309856-4 (Version None)
Quarter: 2004Q1

REPORT INFORMATION
  Report Type: 
  Country: None (occurrence: None)
  Receive Date: 20040227
  Receipt Date: 20031120
  Transmission Date: 20041129
  Serious: No
  Sender: FDA-Public Use
  Company Number: MPS1-10136

PATIENT
  Age: 14 Year
  Sex: Male
  Weight: 53.978 kg

DRUGS (3)
  1. ALDURAZYME [Suspect]
     Indication: MUCOPOLYSACCHARIDOSIS I
     Dosage: 0.58 MG/KG QWK IV
     Dates: start: 20031113
  2. DIPHENHYDRAMINE HCL [Concomitant]
  3. ACETAMINOPHEN [Concomitant]

REACTIONS (2)
  - HEADACHE [None]
  - PARAESTHESIA [None]
